FAERS Safety Report 22136866 (Version 1)
Quarter: 2023Q1

REPORT INFORMATION
  Report Type: Report from Study
  Country: JP (occurrence: JP)
  Receive Date: 20230324
  Receipt Date: 20230324
  Transmission Date: 20230418
  Serious: Yes (Death, Life-Threatening, Other)
  Sender: FDA-Public Use
  Company Number: JP-BAUSCH-BL-2023-004490

PATIENT
  Age: 74 Year
  Sex: Female
  Weight: 47.7 kg

DRUGS (8)
  1. DEMSER [Suspect]
     Active Substance: METYROSINE
     Indication: Blood catecholamines increased
     Route: 048
     Dates: start: 20220702, end: 20220705
  2. DEMSER [Suspect]
     Active Substance: METYROSINE
     Route: 048
     Dates: start: 20220706, end: 20220707
  3. DEMSER [Suspect]
     Active Substance: METYROSINE
     Route: 048
     Dates: start: 20220722, end: 20220825
  4. DEMSER [Suspect]
     Active Substance: METYROSINE
     Route: 048
     Dates: start: 20220826, end: 20220908
  5. DEMSER [Suspect]
     Active Substance: METYROSINE
     Route: 048
     Dates: start: 20220909, end: 20220915
  6. DEMSER [Suspect]
     Active Substance: METYROSINE
     Route: 048
     Dates: start: 20220916, end: 20221101
  7. TRAZODONE HYDROCHLORIDE [Concomitant]
     Active Substance: TRAZODONE HYDROCHLORIDE
     Indication: Product used for unknown indication
  8. DAYVIGO [Concomitant]
     Active Substance: LEMBOREXANT
     Indication: Product used for unknown indication

REACTIONS (3)
  - Depressed level of consciousness [Fatal]
  - Constipation [Unknown]
  - Inappropriate schedule of product administration [Unknown]

NARRATIVE: CASE EVENT DATE: 20220909
